FAERS Safety Report 23533949 (Version 3)
Quarter: 2024Q2

REPORT INFORMATION
  Report Type: Spontaneous
  Country: US (occurrence: US)
  Receive Date: 20240216
  Receipt Date: 20240521
  Transmission Date: 20240716
  Serious: No
  Sender: FDA-Public Use
  Company Number: US-BIOGEN-2023BI01240278

PATIENT
  Age: 22 Year
  Sex: Female

DRUGS (2)
  1. SKYCLARYS [Suspect]
     Active Substance: OMAVELOXOLONE
     Indication: Friedreich^s ataxia
     Dosage: 150 MILLIGRAM, QD (ONCE DAILY)
     Route: 050
     Dates: start: 20230718
  2. SKYCLARYS [Suspect]
     Active Substance: OMAVELOXOLONE
     Dosage: 150 MILLIGRAM, QD (ONCE DAILY)
     Route: 050
     Dates: start: 20230718

REACTIONS (8)
  - Product dose omission issue [Unknown]
  - Urinary tract infection [Unknown]
  - Dehydration [Unknown]
  - Eating disorder [Unknown]
  - Nausea [Not Recovered/Not Resolved]
  - Fatigue [Unknown]
  - Vomiting [Unknown]
  - Hepatic enzyme increased [Recovered/Resolved]

NARRATIVE: CASE EVENT DATE: 20230701
